FAERS Safety Report 8287222-7 (Version None)
Quarter: 2012Q2

REPORT INFORMATION
  Report Type: 
  Country: None (occurrence: None)
  Receive Date: 20120416
  Receipt Date: 20120406
  Transmission Date: 20120825
  Serious: Yes (Hospitalization)
  Sender: FDA-Public Use
  Company Number: US-BAYER-2012-034028

PATIENT
  Age: 30 Year
  Sex: Female
  Weight: 121.9 kg

DRUGS (4)
  1. NEXIUM [Concomitant]
     Dosage: 40 MG, QD
     Route: 048
  2. CELEBREX [Concomitant]
     Dosage: 200 MG, BID
     Route: 048
  3. LORTAB [Concomitant]
     Dosage: 5/500
     Route: 048
  4. YASMIN [Suspect]
     Indication: CONTRACEPTION

REACTIONS (2)
  - PULMONARY EMBOLISM [None]
  - DEEP VEIN THROMBOSIS [None]
